FAERS Safety Report 15352463 (Version 4)
Quarter: 2018Q4

REPORT INFORMATION
  Report Type: Spontaneous
  Country: BR (occurrence: BR)
  Receive Date: 20180905
  Receipt Date: 20181001
  Transmission Date: 20190204
  Serious: Yes (Hospitalization, Other)
  Sender: FDA-Public Use
  Company Number: BR-PFIZER INC-2018352096

PATIENT
  Age: 52 Year
  Sex: Female

DRUGS (4)
  1. ISOFLAVON [Concomitant]
     Indication: BONE DISORDER
     Dosage: UNK
  2. FRONTAL [Suspect]
     Active Substance: ALPRAZOLAM
     Indication: BLOOD PRESSURE INCREASED
     Dosage: 2 TABLETS IN THE MORNING AND 2 TABLETS AT NIGHT
     Dates: start: 2001
  3. FRONTAL [Suspect]
     Active Substance: ALPRAZOLAM
     Indication: ANXIETY
     Dosage: 2 TABLETS IN THE MORNING AND 2 TABLETS AT NIGHT
  4. FRONTAL [Suspect]
     Active Substance: ALPRAZOLAM
     Indication: DEPRESSION

REACTIONS (3)
  - Drug dependence [Not Recovered/Not Resolved]
  - Drug effect decreased [Not Recovered/Not Resolved]
  - Femur fracture [Not Recovered/Not Resolved]

NARRATIVE: CASE EVENT DATE: 2001
